FAERS Safety Report 9136453 (Version 1)
Quarter: 2013Q1

REPORT INFORMATION
  Report Type: Spontaneous
  Country: US (occurrence: US)
  Receive Date: 20130304
  Receipt Date: 20130304
  Transmission Date: 20140127
  Serious: No
  Sender: FDA-Public Use
  Company Number: US-ABBOTT-12P-163-0989235-00

PATIENT
  Sex: Male
  Weight: 90.8 kg

DRUGS (6)
  1. ANDROGEL [Suspect]
     Indication: BLOOD TESTOSTERONE DECREASED
     Dosage: 5 GRAM DAILY
     Dates: start: 201208
  2. TRICOR [Concomitant]
     Indication: BLOOD CHOLESTEROL INCREASED
  3. AMBIEN [Concomitant]
     Indication: INSOMNIA
  4. PROPANOLOL [Concomitant]
     Indication: CARDIAC DISORDER
  5. FLECAINIDE [Concomitant]
     Indication: PALPITATIONS
  6. ASPIRIN [Concomitant]
     Indication: CARDIAC DISORDER

REACTIONS (1)
  - Musculoskeletal pain [Not Recovered/Not Resolved]
